FAERS Safety Report 11218945 (Version 1)
Quarter: 2015Q2

REPORT INFORMATION
  Report Type: Spontaneous
  Country: FR (occurrence: FR)
  Receive Date: 20150625
  Receipt Date: 20150625
  Transmission Date: 20150821
  Serious: Yes (Hospitalization)
  Sender: FDA-Public Use
  Company Number: FR-ELI_LILLY_AND_COMPANY-FR201506007565

PATIENT
  Age: 79 Year
  Sex: Female

DRUGS (8)
  1. CYMBALTA [Suspect]
     Active Substance: DULOXETINE HYDROCHLORIDE
     Indication: DEPRESSION
     Dosage: 30 MG, QD
     Route: 048
     Dates: start: 20140912
  2. BIPRETERAX                         /06377001/ [Suspect]
     Active Substance: INDAPAMIDE\PERINDOPRIL
     Indication: HYPERTENSION
     Dosage: 10 MG/2.5 MG, QD
     Route: 048
     Dates: end: 20140924
  3. TANGANIL                           /01593101/ [Concomitant]
     Dosage: UNK
     Route: 065
     Dates: end: 201409
  4. GAVISCON                           /01521901/ [Concomitant]
     Dosage: UNK
     Route: 065
     Dates: end: 201409
  5. METFORMINE [Concomitant]
     Active Substance: METFORMIN HYDROCHLORIDE
     Dosage: 1700 MG, QD
     Route: 065
  6. SODIUM CHONDROITIN SULFATE [Concomitant]
     Active Substance: SODIUM CHONDROITIN SULFATE
     Dosage: 400 MG, UNK
     Route: 065
     Dates: end: 201409
  7. KARDEGIC [Concomitant]
     Active Substance: ASPIRIN LYSINE
     Dosage: 75 MG, QD
     Route: 065
  8. ZYLORIC [Concomitant]
     Active Substance: ALLOPURINOL
     Dosage: 300 MG, UNK
     Route: 065
     Dates: end: 201409

REACTIONS (3)
  - Hypercalcaemia [Recovered/Resolved]
  - Thyroid cyst [Unknown]
  - Renal impairment [Unknown]

NARRATIVE: CASE EVENT DATE: 20140923
